FAERS Safety Report 6515659-2 (Version None)
Quarter: 2009Q4

REPORT INFORMATION
  Report Type: 
  Country: None (occurrence: None)
  Receive Date: 20091223
  Receipt Date: 20091216
  Transmission Date: 20100525
  Serious: Yes (Hospitalization, Other)
  Sender: FDA-Public Use
  Company Number: US-JNJFOC-20091205288

PATIENT
  Sex: Female

DRUGS (10)
  1. INFLIXIMAB [Suspect]
     Route: 042
  2. INFLIXIMAB [Suspect]
     Route: 042
  3. INFLIXIMAB [Suspect]
     Route: 042
  4. INFLIXIMAB [Suspect]
     Indication: RHEUMATOID ARTHRITIS
     Route: 042
  5. ARAVA [Concomitant]
  6. ARAVA [Concomitant]
  7. CALCIUM AND VITAMIN D [Concomitant]
     Dosage: DOSE: 600-200MG
  8. MULTI-VITAMINS [Concomitant]
  9. SYNTHROID [Concomitant]
     Dosage: DOSE: 112 MCG
  10. ACETAMIN [Concomitant]
     Indication: PREMEDICATION

REACTIONS (3)
  - LUNG NEOPLASM [None]
  - OSTEOPENIA [None]
  - PNEUMONIA [None]
